FAERS Safety Report 6143764 (Version 2)
Quarter: 2015Q3

REPORT INFORMATION
  Report Type: Report from Study
  Country: BR (occurrence: BR)
  Receive Date: 20061009
  Receipt Date: 20150925
  Transmission Date: 20151125
  Serious: Yes (Other)
  Sender: FDA-Public Use
  Company Number: BR-BRISTOL-MYERS SQUIBB COMPANY-13443700

PATIENT
  Age: 38 Year
  Sex: Female

DRUGS (5)
  1. DIAZEPAM. [Concomitant]
     Active Substance: DIAZEPAM
     Indication: PRODUCT USED FOR UNKNOWN INDICATION
     Dosage: UNK
     Route: 065
     Dates: start: 20060512
  2. FLUOXETINE [Concomitant]
     Active Substance: FLUOXETINE\FLUOXETINE HYDROCHLORIDE
     Indication: PRODUCT USED FOR UNKNOWN INDICATION
     Dosage: UNK
     Route: 065
     Dates: start: 20060512
  3. DASATINIB [Suspect]
     Active Substance: DASATINIB
     Indication: CHRONIC MYELOID LEUKAEMIA
     Dosage: 140 MG, QD
     Route: 048
     Dates: start: 20050906, end: 20060511
  4. DASATINIB [Suspect]
     Active Substance: DASATINIB
     Dosage: 180 MG, QD
     Route: 048
     Dates: start: 20060512, end: 20060713
  5. MESIGYNA [Concomitant]
     Indication: CONTRACEPTION
     Dosage: UNK UNK, QMO
     Route: 030
     Dates: start: 20060505, end: 20060605

REACTIONS (2)
  - Abortion spontaneous [Unknown]
  - Pregnancy with injectable contraceptive [Recovered/Resolved]

NARRATIVE: CASE EVENT DATE: 20060803
